FAERS Safety Report 20343005 (Version 2)
Quarter: 2022Q1

REPORT INFORMATION
  Report Type: Spontaneous
  Country: US (occurrence: US)
  Receive Date: 20220117
  Receipt Date: 20220209
  Transmission Date: 20220424
  Serious: Yes (Other)
  Sender: FDA-Public Use
  Company Number: US-TEVA-2022-US-1997472

PATIENT
  Age: 68 Year
  Sex: Male

DRUGS (5)
  1. CARBOPLATIN [Suspect]
     Active Substance: CARBOPLATIN
     Indication: Small cell lung cancer
     Dosage: TARGET 5 AUC
     Route: 065
  2. ETOPOSIDE [Suspect]
     Active Substance: ETOPOSIDE
     Indication: Small cell lung cancer
     Route: 065
  3. ATEZOLIZUMAB [Suspect]
     Active Substance: ATEZOLIZUMAB
     Indication: Small cell lung cancer
     Route: 065
  4. NIVOLUMAB [Suspect]
     Active Substance: NIVOLUMAB
     Indication: Small cell lung cancer
     Dosage: ON DAY 1 OF A 28 DAY CYCLE
     Route: 042
  5. TEMOZOLOMIDE [Suspect]
     Active Substance: TEMOZOLOMIDE
     Indication: Small cell lung cancer
     Dosage: ON DAYS 1-5 OF A 28-DAY CYCLE
     Route: 048

REACTIONS (6)
  - Thrombocytopenia [Unknown]
  - Lymphopenia [Unknown]
  - Rash [Unknown]
  - Weight decreased [Recovered/Resolved]
  - Presyncope [Recovered/Resolved]
  - Off label use [Unknown]
